FAERS Safety Report 5637753-0 (Version None)
Quarter: 2008Q1

REPORT INFORMATION
  Report Type: 
  Country: None (occurrence: None)
  Receive Date: 20080219
  Receipt Date: 20080212
  Transmission Date: 20080703
  Serious: Yes (Death, Other)
  Sender: FDA-Public Use
  Company Number: 163-21880-07111087

PATIENT
  Age: 51 Year
  Sex: Male

DRUGS (1)
  1. REVLIMID [Suspect]
     Indication: MULTIPLE MYELOMA
     Dosage: 25 MG, DAILY X 21 DAYS, ORAL
     Route: 048
     Dates: start: 20071108, end: 20071116

REACTIONS (5)
  - ASTHENIA [None]
  - CEREBRAL THROMBOSIS [None]
  - NASAL DISORDER [None]
  - RENAL FAILURE [None]
  - THROMBOSIS [None]
